FAERS Safety Report 9160887 (Version 1)
Quarter: 2013Q1

REPORT INFORMATION
  Report Type: Spontaneous
  Country: IT (occurrence: None)
  Receive Date: 20130219
  Receipt Date: 20130219
  Transmission Date: 20140127
  Serious: Yes (Other)
  Sender: FDA-Public Use
  Company Number: FK201300483

PATIENT
  Age: 54 Year
  Sex: Male
  Weight: 70 kg

DRUGS (10)
  1. IRINOTECAN [Suspect]
     Dosage: 316.8 MG, CYCLICAL, INTRAVENOUS
     Route: 042
     Dates: start: 20120905, end: 20121122
  2. AVASTIN [Suspect]
     Route: 042
     Dates: start: 20120905, end: 20121122
  3. FLUOROURACIL [Suspect]
     Route: 042
     Dates: start: 20120905, end: 20121122
  4. ONDANSETRON (ONDANSETRON) [Suspect]
     Route: 042
  5. SOLDESAM [Suspect]
     Route: 042
  6. CALCIUM LEVOFOLINATE [Suspect]
     Dates: start: 20120905, end: 20121122
  7. NIMESULIDE [Suspect]
     Route: 048
  8. PRITOR [Suspect]
     Route: 048
  9. VELAMOX [Suspect]
     Route: 048
  10. RANIDIL [Suspect]
     Route: 042
     Dates: start: 20120905, end: 20121122

REACTIONS (7)
  - Erectile dysfunction [None]
  - Constipation [None]
  - Lacrimation increased [None]
  - Salivary hypersecretion [None]
  - Stomatitis [None]
  - Vomiting [None]
  - Nausea [None]
